FAERS Safety Report 10254896 (Version 1)
Quarter: 2014Q2

REPORT INFORMATION
  Report Type: Spontaneous
  Country: IT (occurrence: IT)
  Receive Date: 20140624
  Receipt Date: 20140624
  Transmission Date: 20141212
  Serious: Yes (Other)
  Sender: FDA-Public Use
  Company Number: PHHY2014IT077335

PATIENT
  Age: 38 Year
  Sex: Female

DRUGS (3)
  1. LEPONEX [Suspect]
     Dosage: UNK
     Dates: start: 20140321, end: 20140321
  2. INVEGA (PALIPERIDONE) [Suspect]
     Dosage: UNK
     Dates: start: 20140321, end: 20140321
  3. CARBOLITHIUM [Suspect]
     Dosage: UNK

REACTIONS (1)
  - Self injurious behaviour [Unknown]
